FAERS Safety Report 6965166-8 (Version None)
Quarter: 2010Q3

REPORT INFORMATION
  Report Type: 
  Country: None (occurrence: None)
  Receive Date: 20100903
  Receipt Date: 20100825
  Transmission Date: 20110219
  Serious: Yes (Death, Life-Threatening, Other)
  Sender: FDA-Public Use
  Company Number: JP-PFIZER INC-2010103613

PATIENT
  Age: 71 Year
  Sex: Female
  Weight: 55.6 kg

DRUGS (22)
  1. SILDENAFIL CITRATE [Suspect]
     Indication: PULMONARY ARTERIAL HYPERTENSION
     Dosage: 5 MG, 3X/DAY
     Route: 048
     Dates: start: 20100520, end: 20100523
  2. SILDENAFIL CITRATE [Suspect]
     Dosage: 10 MG, 3X/DAY
     Route: 048
     Dates: start: 20100524, end: 20100606
  3. SILDENAFIL CITRATE [Suspect]
     Dosage: 20 MG, 3X/DAY
     Route: 048
     Dates: start: 20100607, end: 20100817
  4. BERAPROST SODIUM [Concomitant]
     Indication: PULMONARY ARTERIAL HYPERTENSION
     Dosage: UNK
     Route: 048
     Dates: end: 20100817
  5. TRACLEER [Concomitant]
     Dosage: UNK
     Route: 048
     Dates: start: 20100716, end: 20100817
  6. LASIX [Concomitant]
     Dosage: UNK
     Route: 048
     Dates: end: 20100616
  7. LASIX [Concomitant]
     Dosage: UNK
     Route: 042
     Dates: end: 20100817
  8. LANSOPRAZOLE [Concomitant]
     Dosage: UNK
     Route: 048
     Dates: end: 20100817
  9. EURODIN [Concomitant]
     Dosage: UNK
     Route: 048
     Dates: start: 20100809, end: 20100817
  10. SENNOSIDE A [Concomitant]
     Dosage: UNK
     Route: 048
     Dates: end: 20100817
  11. MYSLEE [Concomitant]
     Dosage: UNK
     Route: 048
     Dates: end: 20100817
  12. AMBROXOL HYDROCHLORIDE [Concomitant]
     Dosage: UNK
     Route: 048
     Dates: start: 20100522, end: 20100527
  13. HAPSTAR [Concomitant]
     Dosage: UNK
     Route: 062
     Dates: end: 20100817
  14. DOBUTAMINE HYDROCHLORIDE [Concomitant]
     Dosage: UNK
     Route: 042
     Dates: start: 20100521, end: 20100817
  15. CEFTRIAXONE SODIUM [Concomitant]
     Dosage: UNK
     Route: 042
     Dates: start: 20100521, end: 20100603
  16. DOPAMINE HYDROCHLORIDE [Concomitant]
     Dosage: UNK
     Route: 042
     Dates: start: 20100603, end: 20100817
  17. FESIN [Concomitant]
     Dosage: UNK
     Route: 042
     Dates: end: 20100719
  18. RESPLEN [Concomitant]
     Dosage: UNK
     Route: 048
     Dates: end: 20100817
  19. CALONAL [Concomitant]
     Dosage: UNK
     Route: 048
     Dates: start: 20100530, end: 20100817
  20. LOXONIN [Concomitant]
     Dosage: UNK
     Route: 048
     Dates: start: 20100601, end: 20100817
  21. LOXONIN [Concomitant]
     Dosage: UNK
     Route: 062
     Dates: start: 20100601, end: 20100817
  22. FELBINAC [Concomitant]
     Dosage: UNK
     Route: 062
     Dates: start: 20100730, end: 20100817

REACTIONS (3)
  - CARDIAC FAILURE CONGESTIVE [None]
  - ELECTROCARDIOGRAM QT PROLONGED [None]
  - VENTRICULAR FIBRILLATION [None]
